FAERS Safety Report 9257418 (Version 1)
Quarter: 2013Q2

REPORT INFORMATION
  Report Type: Spontaneous
  Country: US (occurrence: US)
  Receive Date: 20130426
  Receipt Date: 20130426
  Transmission Date: 20140414
  Serious: No
  Sender: FDA-Public Use
  Company Number: US-PFIZER INC-2013127206

PATIENT
  Age: 56 Year
  Sex: Male

DRUGS (3)
  1. VIAGRA [Suspect]
     Indication: ERECTILE DYSFUNCTION
     Dosage: 50 MG, AS NEEDED
     Route: 048
     Dates: start: 20130421
  2. GABAPENTIN [Concomitant]
     Dosage: 300 MG, UNK
  3. ACETAMINOPHEN\HYDROCODONE [Concomitant]
     Dosage: UNK, 2X/DAY
     Route: 048

REACTIONS (1)
  - Drug ineffective [Unknown]
